FAERS Safety Report 5157112-7 (Version None)
Quarter: 2006Q4

REPORT INFORMATION
  Report Type: 
  Country: None (occurrence: None)
  Receive Date: 20061127
  Receipt Date: 20061002
  Transmission Date: 20070319
  Serious: Yes (Hospitalization)
  Sender: FDA-Public Use
  Company Number: FR-BAYER-200610922BFR

PATIENT
  Age: 68 Year
  Sex: Male
  Weight: 81 kg

DRUGS (1)
  1. NEXAVAR [Suspect]
     Indication: METASTATIC RENAL CELL CARCINOMA
     Dosage: TOTAL DAILY DOSE: 800 MG  UNIT DOSE: 200 MG
     Route: 048
     Dates: start: 20060809, end: 20060902

REACTIONS (7)
  - ACUTE ABDOMEN [None]
  - BLOOD AMYLASE INCREASED [None]
  - DIVERTICULITIS [None]
  - LIPASE INCREASED [None]
  - PERIDIVERTICULAR ABSCESS [None]
  - PNEUMOPERITONEUM [None]
  - PYREXIA [None]
